FAERS Safety Report 12610946 (Version 2)
Quarter: 2016Q3

REPORT INFORMATION
  Report Type: Spontaneous
  Country: US (occurrence: US)
  Receive Date: 20160801
  Receipt Date: 20160927
  Transmission Date: 20161109
  Serious: No
  Sender: FDA-Public Use
  Company Number: US-ACTELION-A-US2016-139689

PATIENT
  Age: 73 Year
  Sex: Female

DRUGS (2)
  1. VALCHLOR [Suspect]
     Active Substance: MECHLORETHAMINE
     Indication: MYCOSIS FUNGOIDES
     Dosage: QD
     Route: 061
     Dates: start: 20160605
  2. VALCHLOR [Suspect]
     Active Substance: MECHLORETHAMINE
     Dosage: EVERY OTHER DAY
     Route: 061

REACTIONS (5)
  - Skin tightness [Unknown]
  - Application site erythema [Recovered/Resolved]
  - Application site pruritus [Recovered/Resolved]
  - Application site rash [Recovered/Resolved]
  - Application site papules [Unknown]
